FAERS Safety Report 6735971-1 (Version None)
Quarter: 2010Q2

REPORT INFORMATION
  Report Type: 
  Country: None (occurrence: None)
  Receive Date: 20100521
  Receipt Date: 20100517
  Transmission Date: 20101027
  Serious: Yes (Hospitalization)
  Sender: FDA-Public Use
  Company Number: B0656597A

PATIENT
  Age: 55 Year
  Sex: Female
  Weight: 65 kg

DRUGS (1)
  1. AUGMENTIN '125' [Suspect]
     Indication: ELECTIVE SURGERY
     Dosage: 1TAB TWICE PER DAY
     Route: 065

REACTIONS (9)
  - ASTHENIA [None]
  - DIZZINESS [None]
  - DRUG ERUPTION [None]
  - MALAISE [None]
  - NAUSEA [None]
  - PRURITUS [None]
  - PYREXIA [None]
  - RASH MACULO-PAPULAR [None]
  - VERTIGO [None]
